FAERS Safety Report 12445816 (Version 1)
Quarter: 2016Q2

REPORT INFORMATION
  Report Type: Spontaneous
  Country: US (occurrence: US)
  Receive Date: 20160608
  Receipt Date: 20160608
  Transmission Date: 20160815
  Serious: No
  Sender: FDA-Public Use
  Company Number: US-JNJFOC-20160516018

PATIENT
  Age: 11 Month
  Sex: Female
  Weight: 8.16 kg

DRUGS (8)
  1. INFANTS TYLENOL [Suspect]
     Active Substance: ACETAMINOPHEN
     Indication: RHINORRHOEA
     Dosage: TWICE IN A SHORT TIME PERIOD
     Route: 048
     Dates: start: 20160516, end: 20160516
  2. INFANTS TYLENOL [Suspect]
     Active Substance: ACETAMINOPHEN
     Indication: INSOMNIA
     Route: 048
     Dates: start: 20160516, end: 20160516
  3. INFANTS TYLENOL [Suspect]
     Active Substance: ACETAMINOPHEN
     Indication: COUGH
     Route: 048
     Dates: start: 20160516, end: 20160516
  4. INFANTS TYLENOL [Suspect]
     Active Substance: ACETAMINOPHEN
     Indication: INSOMNIA
     Dosage: TWICE IN A SHORT TIME PERIOD
     Route: 048
     Dates: start: 20160516, end: 20160516
  5. INFANTS TYLENOL [Suspect]
     Active Substance: ACETAMINOPHEN
     Indication: RHINORRHOEA
     Route: 048
     Dates: start: 20160516, end: 20160516
  6. INFANTS TYLENOL [Suspect]
     Active Substance: ACETAMINOPHEN
     Indication: SINUS CONGESTION
     Route: 048
     Dates: start: 20160516, end: 20160516
  7. INFANTS TYLENOL [Suspect]
     Active Substance: ACETAMINOPHEN
     Indication: SINUS CONGESTION
     Dosage: TWICE IN A SHORT TIME PERIOD
     Route: 048
     Dates: start: 20160516, end: 20160516
  8. INFANTS TYLENOL [Suspect]
     Active Substance: ACETAMINOPHEN
     Indication: COUGH
     Dosage: TWICE IN A SHORT TIME PERIOD
     Route: 048
     Dates: start: 20160516, end: 20160516

REACTIONS (4)
  - Extra dose administered [Unknown]
  - Drug administration error [Unknown]
  - Product use issue [Unknown]
  - Off label use [Unknown]
